FAERS Safety Report 12792907 (Version 1)
Quarter: 2016Q3

REPORT INFORMATION
  Report Type: Spontaneous
  Country: US (occurrence: US)
  Receive Date: 20160928
  Receipt Date: 20160928
  Transmission Date: 20161109
  Serious: Yes (Life-Threatening)
  Sender: FDA-Public Use
  Company Number: None

PATIENT
  Age: 59 Year
  Sex: Female
  Weight: 91.7 kg

DRUGS (1)
  1. LIDOCAINE. [Suspect]
     Active Substance: LIDOCAINE
     Dates: start: 20160511, end: 20160511

REACTIONS (7)
  - Upper airway obstruction [None]
  - Urticaria [None]
  - Rash [None]
  - Throat tightness [None]
  - Dyspnoea [None]
  - Erythema [None]
  - Anaphylactic reaction [None]

NARRATIVE: CASE EVENT DATE: 20160510
